FAERS Safety Report 22337776 (Version 1)
Quarter: 2023Q2

REPORT INFORMATION
  Report Type: Spontaneous
  Country: US (occurrence: US)
  Receive Date: 20230518
  Receipt Date: 20230518
  Transmission Date: 20230721
  Serious: No
  Sender: FDA-Public Use
  Company Number: US-COLLEGIUM PHARMACEUTICAL, INC.-2022CGM00394

PATIENT
  Age: 49 Year
  Sex: Male
  Weight: 88.435 kg

DRUGS (9)
  1. XTAMPZA ER [Suspect]
     Active Substance: OXYCODONE
     Dosage: 72 MG, 1X/DAY IN THE MORNING
     Route: 048
     Dates: start: 20220526
  2. XTAMPZA ER [Suspect]
     Active Substance: OXYCODONE
     Dosage: 36 MG, 1X/DAY IN THE EVENING
     Route: 048
     Dates: start: 20220526
  3. OXYCODONE HYDROCHLORIDE [Concomitant]
     Active Substance: OXYCODONE HYDROCHLORIDE
  4. SYNTHROID [Concomitant]
     Active Substance: LEVOTHYROXINE SODIUM
  5. METFORMIN [Concomitant]
     Active Substance: METFORMIN HYDROCHLORIDE
  6. JARDIANCE [Concomitant]
     Active Substance: EMPAGLIFLOZIN
  7. LACTULOSE [Concomitant]
     Active Substance: LACTULOSE
  8. SULFAMETHOXAZOLE ANTIBIOTICS [Concomitant]
     Dosage: UNK
     Dates: start: 202204, end: 2022
  9. AMOXICILLIN [Concomitant]
     Active Substance: AMOXICILLIN
     Dosage: UNK
     Dates: start: 2022

REACTIONS (7)
  - Feeling jittery [Recovered/Resolved]
  - Breakthrough pain [Not Recovered/Not Resolved]
  - Malabsorption [Not Recovered/Not Resolved]
  - Therapeutic product effect decreased [Not Recovered/Not Resolved]
  - Therapeutic product effect delayed [Not Recovered/Not Resolved]
  - Wrong technique in product usage process [Recovered/Resolved]
  - Therapeutic product effect decreased [Not Recovered/Not Resolved]

NARRATIVE: CASE EVENT DATE: 20220526
